FAERS Safety Report 7906556-6 (Version None)
Quarter: 2011Q4

REPORT INFORMATION
  Report Type: 
  Country: None (occurrence: None)
  Receive Date: 20111110
  Receipt Date: 20110211
  Transmission Date: 20120403
  Serious: No
  Sender: FDA-Public Use
  Company Number: US-MUTUAL PHARMACEUTICAL COMPANY, INC.-PNTM20110001

PATIENT
  Age: 35 Year
  Sex: Female

DRUGS (1)
  1. PHENTERMINE [Suspect]
     Indication: WEIGHT DECREASED
     Route: 048
     Dates: start: 20110114

REACTIONS (4)
  - DRUG INEFFECTIVE [None]
  - RESTLESSNESS [None]
  - ANXIETY [None]
  - INSOMNIA [None]
